FAERS Safety Report 24614204 (Version 1)
Quarter: 2024Q4

REPORT INFORMATION
  Report Type: Report from Study
  Country: BR (occurrence: BR)
  Receive Date: 20241113
  Receipt Date: 20241113
  Transmission Date: 20250115
  Serious: Yes (Other)
  Sender: GLAXOSMITHKLINE
  Company Number: BR-GSK-BR2024AMR116247

PATIENT

DRUGS (1)
  1. BELIMUMAB [Suspect]
     Active Substance: BELIMUMAB
     Indication: Systemic lupus erythematosus
     Dosage: UNK
     Dates: start: 20160711

REACTIONS (5)
  - Renal impairment [Not Recovered/Not Resolved]
  - Localised infection [Not Recovered/Not Resolved]
  - Anaemia [Not Recovered/Not Resolved]
  - Candida infection [Not Recovered/Not Resolved]
  - Uterine polyp [Not Recovered/Not Resolved]

NARRATIVE: CASE EVENT DATE: 20240801
